FAERS Safety Report 14594682 (Version 5)
Quarter: 2018Q4

REPORT INFORMATION
  Report Type: Report from Study
  Country: US (occurrence: US)
  Receive Date: 20180302
  Receipt Date: 20181214
  Transmission Date: 20190204
  Serious: Yes (Death, Hospitalization, Other)
  Sender: FDA-Public Use
  Company Number: US-ACTELION-A-US2017-159429

PATIENT
  Age: 52 Year
  Sex: Male

DRUGS (13)
  1. CEFTRIAXONE. [Concomitant]
     Active Substance: CEFTRIAXONE
  2. ATORVASTATIN [Concomitant]
     Active Substance: ATORVASTATIN
     Dosage: UNK
     Dates: start: 201708
  3. LYRICA [Concomitant]
     Active Substance: PREGABALIN
  4. ASPIRIN. [Concomitant]
     Active Substance: ASPIRIN
     Dosage: UNK
     Dates: start: 201708
  5. SILDENAFIL. [Concomitant]
     Active Substance: SILDENAFIL
     Dosage: UNK
  6. ALLOPURINOL. [Concomitant]
     Active Substance: ALLOPURINOL
     Dosage: UNK
     Dates: start: 201708
  7. GABAPENTIN. [Concomitant]
     Active Substance: GABAPENTIN
     Dosage: UNK
     Dates: start: 201708
  8. POTASSIUM CHLORIDE. [Concomitant]
     Active Substance: POTASSIUM CHLORIDE
     Dosage: UNK
     Dates: start: 201708
  9. VANCOMYCIN [Concomitant]
     Active Substance: VANCOMYCIN
  10. METOPROLOL. [Concomitant]
     Active Substance: METOPROLOL
     Dosage: UNK
     Dates: start: 201708
  11. OPSUMIT [Suspect]
     Active Substance: MACITENTAN
     Indication: PULMONARY ARTERIAL HYPERTENSION
     Dosage: 10 MG, QD
     Route: 048
     Dates: start: 20160606
  12. CEFAZOLIN [Concomitant]
     Active Substance: CEFAZOLIN
  13. BACLOFEN. [Concomitant]
     Active Substance: BACLOFEN

REACTIONS (40)
  - Fluid retention [Not Recovered/Not Resolved]
  - Generalised oedema [Recovered/Resolved]
  - Lethargy [Not Recovered/Not Resolved]
  - Chills [Recovered/Resolved]
  - Renal cyst [Recovered/Resolved]
  - Pleural effusion [Recovered/Resolved]
  - Condition aggravated [Not Recovered/Not Resolved]
  - Oxygen saturation decreased [Recovered/Resolved]
  - Weight increased [Recovered/Resolved]
  - Confusional state [Recovered/Resolved]
  - Blood creatinine increased [Unknown]
  - Nodule [Unknown]
  - Respiratory failure [Recovered/Resolved]
  - Nausea [Recovered/Resolved]
  - Cellulitis [Recovered/Resolved]
  - Pain in extremity [Recovered/Resolved]
  - Abdominal pain [Recovered/Resolved]
  - Cardiac failure acute [Not Recovered/Not Resolved]
  - Waist circumference increased [Not Recovered/Not Resolved]
  - Ascites [Unknown]
  - Constipation [Recovered/Resolved]
  - Foot fracture [Not Recovered/Not Resolved]
  - Peripheral swelling [Not Recovered/Not Resolved]
  - Pulmonary oedema [Unknown]
  - Abdominal distension [Unknown]
  - Unevaluable event [Unknown]
  - Dyspnoea [Recovered/Resolved]
  - Aspiration pleural cavity [Recovered/Resolved]
  - Air embolism [Unknown]
  - Renal failure [Unknown]
  - Biopsy liver [Recovered/Resolved]
  - Paracentesis [Unknown]
  - Blood pressure abnormal [Recovered/Resolved]
  - Heat stroke [Recovered/Resolved]
  - Fall [Unknown]
  - Drug screen positive [Unknown]
  - Death [Fatal]
  - Hepatic cirrhosis [Unknown]
  - Cough [Recovered/Resolved]
  - Pulmonary arterial hypertension [Unknown]

NARRATIVE: CASE EVENT DATE: 201708
